FAERS Safety Report 13597565 (Version 3)
Quarter: 2017Q2

REPORT INFORMATION
  Report Type: Spontaneous
  Country: IT (occurrence: IT)
  Receive Date: 20170531
  Receipt Date: 20170630
  Transmission Date: 20170830
  Serious: Yes (Hospitalization, Other)
  Sender: FDA-Public Use
  Company Number: PHHY2017IT074760

PATIENT
  Age: 72 Year
  Sex: Female
  Weight: 76 kg

DRUGS (9)
  1. BISOPROLOL [Concomitant]
     Active Substance: BISOPROLOL
     Indication: PRODUCT USED FOR UNKNOWN INDICATION
     Route: 065
  2. DEXAMETHASONE. [Concomitant]
     Active Substance: DEXAMETHASONE
     Indication: PRODUCT USED FOR UNKNOWN INDICATION
     Dosage: 16 MG, UNK
     Route: 042
     Dates: start: 20170111, end: 20170324
  3. DOCETAXEL SANDOZ [Suspect]
     Active Substance: DOCETAXEL
     Indication: BREAST CANCER
     Dosage: 100 MG, CYCLIC
     Route: 042
     Dates: start: 20170112, end: 20170322
  4. LUCEN [Concomitant]
     Active Substance: ESOMEPRAZOLE
     Indication: PRODUCT USED FOR UNKNOWN INDICATION
     Route: 065
  5. ARIXTRA [Concomitant]
     Active Substance: FONDAPARINUX SODIUM
     Indication: PRODUCT USED FOR UNKNOWN INDICATION
     Route: 065
  6. CARBOPLATINO AHCL [Suspect]
     Active Substance: CARBOPLATIN
     Indication: BREAST CANCER
     Dosage: 629.9 MG, CYCLIC
     Route: 042
     Dates: start: 20170112, end: 20170322
  7. FILGRASTIM [Concomitant]
     Active Substance: FILGRASTIM
     Indication: PROPHYLAXIS
     Route: 065
     Dates: start: 20170112, end: 20170322
  8. ONDANSETRON HIKMA [Concomitant]
     Active Substance: ONDANSETRON
     Indication: PRODUCT USED FOR UNKNOWN INDICATION
     Dosage: 8 MG, UNK
     Route: 042
  9. HERCEPTIN [Suspect]
     Active Substance: TRASTUZUMAB
     Indication: BREAST CANCER
     Dosage: 474 MG, CYCLIC
     Route: 042
     Dates: start: 20170112, end: 20170322

REACTIONS (16)
  - Cardiac failure [Unknown]
  - Hypokalaemic syndrome [Recovered/Resolved with Sequelae]
  - Neutropenia [Recovered/Resolved with Sequelae]
  - Paronychia [Unknown]
  - Skin discolouration [Unknown]
  - Thrombocytopenia [Recovered/Resolved with Sequelae]
  - Corneal bleeding [Unknown]
  - Neurotoxicity [Unknown]
  - Atrial fibrillation [Unknown]
  - Erythema [Unknown]
  - Pruritus [Unknown]
  - Staphylococcal sepsis [Recovered/Resolved with Sequelae]
  - Bone marrow failure [Unknown]
  - Anaemia [Recovered/Resolved with Sequelae]
  - Leukopenia [Unknown]
  - Oedema [Unknown]

NARRATIVE: CASE EVENT DATE: 20170331
